FAERS Safety Report 8009860-9 (Version None)
Quarter: 2011Q4

REPORT INFORMATION
  Report Type: 
  Country: None (occurrence: None)
  Receive Date: 20111228
  Receipt Date: 20111223
  Transmission Date: 20120403
  Serious: Yes (Other)
  Sender: FDA-Public Use
  Company Number: US-BAYER-2011-123487

PATIENT
  Sex: Female

DRUGS (2)
  1. BETASERON [Suspect]
     Dosage: 0.25 MG, UNK
     Route: 058
     Dates: start: 20111201
  2. BETASERON [Suspect]
     Indication: MULTIPLE SCLEROSIS
     Dosage: 6 MIU, QOD (3/4 DOSE)
     Route: 058
     Dates: start: 20090206

REACTIONS (2)
  - HEPATIC ENZYME ABNORMAL [None]
  - CYANOSIS [None]
